FAERS Safety Report 14163681 (Version 17)
Quarter: 2019Q2

REPORT INFORMATION
  Report Type: Spontaneous
  Country: US (occurrence: US)
  Receive Date: 20171106
  Receipt Date: 20190611
  Transmission Date: 20190711
  Serious: No
  Sender: FDA-Public Use
  Company Number: US-ACTELION-A-US2017-162042

PATIENT
  Age: 57 Year
  Sex: Female

DRUGS (9)
  1. GABAPENTIN. [Concomitant]
     Active Substance: GABAPENTIN
     Dosage: UNK
  2. OXYGEN. [Concomitant]
     Active Substance: OXYGEN
  3. SILDENAFIL. [Concomitant]
     Active Substance: SILDENAFIL
     Dosage: 20 MG, TID
     Route: 048
     Dates: start: 2011
  4. DILTIAZEM. [Concomitant]
     Active Substance: DILTIAZEM
  5. VIAGRA [Concomitant]
     Active Substance: SILDENAFIL CITRATE
  6. NAPROXEN. [Concomitant]
     Active Substance: NAPROXEN
     Dosage: UNK
  7. TYLENOL [Concomitant]
     Active Substance: ACETAMINOPHEN
     Dosage: UNK
  8. AMITRIPTYLINE [Concomitant]
     Active Substance: AMITRIPTYLINE
  9. OPSUMIT [Suspect]
     Active Substance: MACITENTAN
     Indication: PULMONARY ARTERIAL HYPERTENSION
     Dosage: 10 MG, QD
     Route: 048
     Dates: start: 20171031

REACTIONS (33)
  - Hiatus hernia [Unknown]
  - Nasal congestion [Recovering/Resolving]
  - Pruritus [Unknown]
  - Dizziness [Unknown]
  - Sinusitis [Unknown]
  - Musculoskeletal stiffness [Unknown]
  - Dyspnoea [Unknown]
  - Peripheral swelling [Unknown]
  - Nervousness [Not Recovered/Not Resolved]
  - Oxygen saturation increased [Not Recovered/Not Resolved]
  - Ligament sprain [Unknown]
  - Hypotension [Not Recovered/Not Resolved]
  - Feeling abnormal [Not Recovered/Not Resolved]
  - Cough [Unknown]
  - Blood potassium decreased [Unknown]
  - Ocular hyperaemia [Not Recovered/Not Resolved]
  - Asthenia [Unknown]
  - Fatigue [Unknown]
  - Hot flush [Recovering/Resolving]
  - Ear infection [Unknown]
  - Neck pain [Unknown]
  - Fall [Unknown]
  - Nasopharyngitis [Unknown]
  - Nausea [Not Recovered/Not Resolved]
  - Energy increased [Not Recovered/Not Resolved]
  - Product dose omission [Unknown]
  - Headache [Unknown]
  - Insomnia [Unknown]
  - Palpitations [Unknown]
  - Chest pain [Unknown]
  - Anxiety [Unknown]
  - Excessive cerumen production [Unknown]
  - Vertigo [Unknown]

NARRATIVE: CASE EVENT DATE: 20171031
